FAERS Safety Report 9928933 (Version 1)
Quarter: 2014Q1

REPORT INFORMATION
  Report Type: Spontaneous
  Country: DE (occurrence: DE)
  Receive Date: 20140227
  Receipt Date: 20140227
  Transmission Date: 20141002
  Serious: Yes (Other)
  Sender: FDA-Public Use
  Company Number: DE-BAXTER-2014BAX008565

PATIENT
  Age: 29 Year
  Sex: Female

DRUGS (4)
  1. ENDOXAN 1G [Suspect]
     Indication: BREAST CANCER
     Route: 065
     Dates: start: 20140116
  2. ENDOXAN 1G [Suspect]
     Route: 065
     Dates: start: 20140210
  3. EPIRUBICIN [Concomitant]
     Indication: BREAST CANCER
     Route: 065
     Dates: start: 20140116
  4. EPIRUBICIN [Concomitant]
     Route: 065
     Dates: start: 20140210

REACTIONS (1)
  - Exposure during pregnancy [Unknown]
